FAERS Safety Report 4406286-1 (Version None)
Quarter: 2004Q3

REPORT INFORMATION
  Report Type: 
  Country: None (occurrence: None)
  Receive Date: 20040723
  Receipt Date: 20030606
  Transmission Date: 20050211
  Serious: No
  Sender: FDA-Public Use
  Company Number: US-GLAXOSMITHKLINE-A0411418A

PATIENT
  Sex: Female

DRUGS (2)
  1. AVANDIA [Suspect]
  2. UNSPECIFIED MEDICATION [Concomitant]

REACTIONS (1)
  - DIZZINESS [None]
